FAERS Safety Report 18610303 (Version 2)
Quarter: 2021Q1

REPORT INFORMATION
  Report Type: Spontaneous
  Country: BR (occurrence: BR)
  Receive Date: 20201214
  Receipt Date: 20210305
  Transmission Date: 20210419
  Serious: Yes (Other)
  Sender: FDA-Public Use
  Company Number: BR-EMD SERONO-9201313

PATIENT
  Age: 77 Year
  Sex: Female

DRUGS (6)
  1. PROLOPA [Concomitant]
     Active Substance: BENSERAZIDE\LEVODOPA
     Indication: PRODUCT USED FOR UNKNOWN INDICATION
  2. GLIFAGE [Suspect]
     Active Substance: METFORMIN HYDROCHLORIDE
     Indication: PRODUCT USED FOR UNKNOWN INDICATION
  3. THIOCTACID [Suspect]
     Active Substance: .ALPHA.-LIPOIC ACID
     Dosage: THERAPY START DATE: 20 NOV 2020
     Route: 048
  4. ADDERA D3 [Concomitant]
     Active Substance: CHOLECALCIFEROL
     Indication: PRODUCT USED FOR UNKNOWN INDICATION
  5. THIOCTACID [Suspect]
     Active Substance: .ALPHA.-LIPOIC ACID
     Indication: DIABETES MELLITUS
     Dates: end: 202011
  6. ALOIS [Concomitant]
     Active Substance: MEMANTINE
     Indication: PRODUCT USED FOR UNKNOWN INDICATION

REACTIONS (7)
  - Off label use [Unknown]
  - Treatment noncompliance [Recovered/Resolved]
  - Dementia Alzheimer^s type [Unknown]
  - Product availability issue [Recovered/Resolved]
  - Bedridden [Unknown]
  - Abdominal pain [Unknown]
  - Blindness [Unknown]

NARRATIVE: CASE EVENT DATE: 2019
